FAERS Safety Report 7005466-9 (Version None)
Quarter: 2010Q3

REPORT INFORMATION
  Report Type: 
  Country: None (occurrence: None)
  Receive Date: 20100921
  Receipt Date: 20100913
  Transmission Date: 20110219
  Serious: Yes (Other)
  Sender: FDA-Public Use
  Company Number: US-ROCHE-727125

PATIENT
  Age: 45 Year
  Sex: Male

DRUGS (4)
  1. CELLCEPT [Suspect]
     Dosage: CONVERTED TO ENTERIC COATED MYCOPHENOLIC ACID.
     Route: 065
  2. TACROLIMUS [Suspect]
     Route: 065
  3. TACROLIMUS [Suspect]
     Dosage: DOSE REDUCTION.
     Route: 065
  4. SOLU-MEDROL [Suspect]
     Route: 065

REACTIONS (2)
  - MALACOPLAKIA GASTROINTESTINAL [None]
  - TRANSPLANT REJECTION [None]
